FAERS Safety Report 25330914 (Version 1)
Quarter: 2025Q2

REPORT INFORMATION
  Report Type: Spontaneous
  Country: US (occurrence: None)
  Receive Date: 20250517
  Receipt Date: 20250517
  Transmission Date: 20250716
  Serious: Yes (Death, Hospitalization)
  Sender: FDA-CTU
  Company Number: None

PATIENT
  Age: 88 Year
  Sex: Male
  Weight: 80 kg

DRUGS (2)
  1. ABIRATERONE ACETATE [Suspect]
     Active Substance: ABIRATERONE ACETATE
  2. LEUPROLIDE ACETATE [Suspect]
     Active Substance: LEUPROLIDE ACETATE

REACTIONS (9)
  - Norovirus infection [None]
  - Dysarthria [None]
  - Fall [None]
  - Hypoxia [None]
  - Hypoaesthesia [None]
  - Influenza [None]
  - Therapy interrupted [None]
  - Prostatic specific antigen increased [None]
  - Metastases to spine [None]

NARRATIVE: CASE EVENT DATE: 20250121
